FAERS Safety Report 16886141 (Version 1)
Quarter: 2019Q4

REPORT INFORMATION
  Report Type: Spontaneous
  Country: US (occurrence: US)
  Receive Date: 20191004
  Receipt Date: 20191004
  Transmission Date: 20200122
  Serious: No
  Sender: FDA-Public Use
  Company Number: None

PATIENT
  Sex: Female

DRUGS (2)
  1. CARVEDILOL TITRATED TO 6.25 MG [Suspect]
     Active Substance: CARVEDILOL
  2. CARVEDILOL TITRATED TO 12.5 MG [Suspect]
     Active Substance: CARVEDILOL

REACTIONS (1)
  - Therapy non-responder [None]
